FAERS Safety Report 7540525-3 (Version None)
Quarter: 2011Q2

REPORT INFORMATION
  Report Type: 
  Country: None (occurrence: None)
  Receive Date: 20110610
  Receipt Date: 20110603
  Transmission Date: 20111010
  Serious: Yes (Other)
  Sender: FDA-Public Use
  Company Number: A0930962A

PATIENT
  Sex: Female
  Weight: 55 kg

DRUGS (4)
  1. NAPRIX [Concomitant]
  2. CALTREN [Concomitant]
  3. PAXIL CR [Suspect]
     Indication: ANXIETY
     Dosage: 12.5MG PER DAY
     Route: 065
     Dates: start: 20100601, end: 20100607
  4. ASPIRIN [Suspect]
     Dosage: 1TAB PER DAY
     Dates: start: 20060101, end: 20101001

REACTIONS (6)
  - TREMOR [None]
  - TENSION HEADACHE [None]
  - TACHYCARDIA [None]
  - GASTRITIS HAEMORRHAGIC [None]
  - HEADACHE [None]
  - ANXIETY [None]
